FAERS Safety Report 6795683-5 (Version None)
Quarter: 2010Q2

REPORT INFORMATION
  Report Type: 
  Country: None (occurrence: None)
  Receive Date: 20100520
  Receipt Date: 20090727
  Transmission Date: 20101027
  Serious: Yes (Other)
  Sender: FDA-Public Use
  Company Number: 2009226300

PATIENT
  Age: 74 Year
  Sex: Female
  Weight: 57 kg

DRUGS (6)
  1. PROVERA [Suspect]
     Indication: HORMONE REPLACEMENT THERAPY
     Dosage: 2.5, ORAL
     Route: 048
     Dates: start: 19901001, end: 19990801
  2. OGEN [Suspect]
     Indication: HORMONE REPLACEMENT THERAPY
     Dosage: 0.625, ORAL
     Route: 048
     Dates: start: 19901001, end: 19930301
  3. PREMARIN [Suspect]
     Indication: HORMONE REPLACEMENT THERAPY
     Dosage: 0.625
     Dates: start: 19940601, end: 19950601
  4. ESTRACE [Suspect]
     Indication: HORMONE REPLACEMENT THERAPY
     Dosage: 1
     Dates: start: 19951101, end: 19990801
  5. THYROID TAB [Concomitant]
  6. LOZOL [Concomitant]

REACTIONS (1)
  - BREAST CANCER FEMALE [None]
